FAERS Safety Report 6493985-3 (Version None)
Quarter: 2009Q4

REPORT INFORMATION
  Report Type: 
  Country: None (occurrence: None)
  Receive Date: 20091214
  Receipt Date: 20081204
  Transmission Date: 20100525
  Serious: No
  Sender: FDA-Public Use
  Company Number: US-BRISTOL-MYERS SQUIBB COMPANY-14431100

PATIENT
  Age: 50 Year
  Sex: Male
  Weight: 80 kg

DRUGS (6)
  1. ABILIFY [Suspect]
     Indication: BIPOLAR DISORDER
     Dates: start: 20080730
  2. LITHIUM [Concomitant]
  3. KETOPROFEN [Concomitant]
  4. PRIMIDONE [Concomitant]
  5. DILANTIN [Concomitant]
  6. KETOCONAZOLE [Concomitant]
     Dosage: KETOCONAZOLE SHAMPOO

REACTIONS (2)
  - ERECTILE DYSFUNCTION [None]
  - URINARY INCONTINENCE [None]
